FAERS Safety Report 9374045 (Version 1)
Quarter: 2013Q2

REPORT INFORMATION
  Report Type: Spontaneous
  Country: US (occurrence: US)
  Receive Date: 20130628
  Receipt Date: 20130628
  Transmission Date: 20140414
  Serious: No
  Sender: FDA-Public Use
  Company Number: US-009507513-1306USA013325

PATIENT
  Sex: Male

DRUGS (1)
  1. SAPHRIS [Suspect]
     Indication: MAJOR DEPRESSION
     Dosage: 5 MG, QD
     Route: 060
     Dates: start: 201011, end: 2013

REACTIONS (1)
  - Oral discomfort [Unknown]
